FAERS Safety Report 4897500-7 (Version None)
Quarter: 2005Q4

REPORT INFORMATION
  Report Type: 
  Country: None (occurrence: None)
  Receive Date: 20051223
  Receipt Date: 20050919
  Transmission Date: 20060501
  Serious: No
  Sender: FDA-Public Use
  Company Number: 05P-163-0311284-00

PATIENT
  Age: 69 Year
  Sex: Female
  Weight: 85.7298 kg

DRUGS (8)
  1. HUMIRA [Suspect]
     Indication: RHEUMATOID ARTHRITIS
     Dosage: 40 MG, 1 IN 1 WK, SUBCUTANEOUS
     Route: 058
     Dates: start: 20040101, end: 20050827
  2. HYDROXYCHLOROQUINE PHOSPHATE [Concomitant]
  3. CLODRONATE DISODIUM [Concomitant]
  4. TOPROL [Concomitant]
  5. CHILDREN'S ASPIRIN [Concomitant]
  6. RAMIPRIL [Concomitant]
  7. SOTALOL HCL [Concomitant]
  8. METHOTREXATE [Concomitant]

REACTIONS (1)
  - BRONCHITIS [None]
